FAERS Safety Report 6000254-4 (Version None)
Quarter: 2008Q4

REPORT INFORMATION
  Report Type: 
  Country: None (occurrence: None)
  Receive Date: 20081215
  Receipt Date: 20081204
  Transmission Date: 20090506
  Serious: Yes (Hospitalization)
  Sender: FDA-Public Use
  Company Number: FR-MERCK-0812FRA00026

PATIENT
  Age: 69 Year
  Sex: Female

DRUGS (3)
  1. PRIMAXIN [Suspect]
     Route: 042
     Dates: start: 20080908, end: 20080922
  2. VANCOMYCIN [Suspect]
     Route: 051
     Dates: start: 20080820, end: 20080922
  3. BUMETANIDE [Suspect]
     Route: 048
     Dates: start: 20080916, end: 20080924

REACTIONS (2)
  - PRURITUS [None]
  - RASH MORBILLIFORM [None]
